FAERS Safety Report 7387192-X (Version None)
Quarter: 2011Q1

REPORT INFORMATION
  Report Type: 
  Country: None (occurrence: None)
  Receive Date: 20110331
  Receipt Date: 20110322
  Transmission Date: 20110831
  Serious: Yes (Other)
  Sender: FDA-Public Use
  Company Number: B0708828A

PATIENT
  Age: 63 Year
  Sex: Female

DRUGS (1)
  1. TYVERB [Suspect]
     Route: 048

REACTIONS (3)
  - ACNE [None]
  - SKIN TOXICITY [None]
  - DIARRHOEA [None]
